FAERS Safety Report 24718695 (Version 2)
Quarter: 2024Q4

REPORT INFORMATION
  Report Type: Spontaneous
  Country: JP (occurrence: JP)
  Receive Date: 20241210
  Receipt Date: 20241220
  Transmission Date: 20250115
  Serious: Yes (Hospitalization, Disabling, Other)
  Sender: Visiox
  Company Number: JP-SANTEN-2024-AER-00481

PATIENT
  Age: 77 Year
  Sex: Female

DRUGS (1)
  1. OMIDENEPAG ISOPROPYL [Suspect]
     Active Substance: OMIDENEPAG ISOPROPYL
     Indication: Normal tension glaucoma
     Dosage: BOTH EYES: 1 DROP ONCE A DAY
     Route: 047
     Dates: start: 20231201, end: 20240805

REACTIONS (3)
  - Retinal haemorrhage [Unknown]
  - Macular oedema [Recovering/Resolving]
  - Macular oedema [Unknown]

NARRATIVE: CASE EVENT DATE: 20240729
